FAERS Safety Report 9122082 (Version 2)
Quarter: 2014Q3

REPORT INFORMATION
  Report Type: Report from Study
  Country: NL (occurrence: NL)
  Receive Date: 20130114
  Receipt Date: 20140804
  Transmission Date: 20150326
  Serious: Yes (Death, Other)
  Sender: FDA-Public Use
  Company Number: PHHY2013NL002769

PATIENT
  Sex: Male

DRUGS (10)
  1. ZOMETA [Suspect]
     Active Substance: ZOLEDRONIC ACID
     Indication: PROSTATE CANCER METASTATIC
     Dosage: 4 MG, EVERY 28 DAYS
     Route: 042
     Dates: start: 20120109
  2. LANOXIN [Concomitant]
     Active Substance: DIGOXIN
     Dosage: UNK UKN, UNK
  3. ZOMETA [Suspect]
     Active Substance: ZOLEDRONIC ACID
     Dosage: 4 MG, EVERY 28 DAYS
     Route: 042
     Dates: start: 20120217
  4. OXYNORM [Concomitant]
     Active Substance: OXYCODONE HYDROCHLORIDE
     Dosage: UNK UKN, UNK
  5. PARACETAMOL [Concomitant]
     Active Substance: ACETAMINOPHEN
     Dosage: UNK UKN, UNK
  6. LACTULOSE. [Concomitant]
     Active Substance: LACTULOSE
     Dosage: UNK UKN, UNK
  7. FERROUS SULFATE [Concomitant]
     Active Substance: FERROUS SULFATE\FERROUS SULFATE, DRIED
     Dosage: UNK UKN, UNK
  8. ZOMETA [Suspect]
     Active Substance: ZOLEDRONIC ACID
     Dosage: 4 MG, EVERY 28 DAYS
     Route: 042
     Dates: start: 20121120
  9. LOSARTAN [Concomitant]
     Active Substance: LOSARTAN
     Dosage: UNK UKN, UNK
  10. ASCAL [Concomitant]
     Active Substance: CARBASALATE
     Dosage: UNK UKN, UNK

REACTIONS (1)
  - General physical health deterioration [Fatal]
